FAERS Safety Report 5204795-9 (Version None)
Quarter: 2007Q1

REPORT INFORMATION
  Report Type: 
  Country: None (occurrence: None)
  Receive Date: 20070110
  Receipt Date: 20060720
  Transmission Date: 20070707
  Serious: No
  Sender: FDA-Public Use
  Company Number: US-BRISTOL-MYERS SQUIBB COMPANY-13448824

PATIENT
  Age: 7 Year
  Sex: Female
  Weight: 35 kg

DRUGS (2)
  1. ABILIFY [Suspect]
     Indication: ATTENTION DEFICIT/HYPERACTIVITY DISORDER
     Dates: start: 20060601
  2. ABILIFY [Suspect]
     Indication: CYCLOTHYMIC DISORDER
     Dates: start: 20060601

REACTIONS (1)
  - TONGUE EXFOLIATION [None]
